FAERS Safety Report 10008880 (Version 2)
Quarter: 2014Q1

REPORT INFORMATION
  Report Type: Spontaneous
  Country: US (occurrence: US)
  Receive Date: 20140312
  Receipt Date: 20140312
  Transmission Date: 20141002
  Serious: No
  Sender: FDA-Public Use
  Company Number: US-INCYTE CORPORATION-2012IN000665

PATIENT
  Age: 71 Year
  Sex: Female
  Weight: 78.46 kg

DRUGS (24)
  1. JAKAFI [Suspect]
     Indication: MYELOFIBROSIS
     Dosage: 20 MG, BID
     Route: 048
     Dates: start: 20120119, end: 20120213
  2. JAKAFI [Suspect]
     Dosage: 15 MG, BID
     Route: 048
     Dates: start: 20120214, end: 20120430
  3. JAKAFI [Suspect]
     Dosage: 15 MG, QD IN THE MORNING
     Route: 048
     Dates: start: 20120501, end: 20120515
  4. JAKAFI [Suspect]
     Dosage: 20 MG, QD  IN THE EVENING
     Dates: start: 20120501, end: 20120515
  5. JAKAFI [Suspect]
     Dosage: 20 MG, BID
     Route: 048
     Dates: start: 20120516
  6. XYZAL [Concomitant]
  7. ATARAX [Concomitant]
  8. AMITRIPTYLINE [Concomitant]
  9. CETAPHIL [Concomitant]
  10. TRIAMCINOLONE [Concomitant]
     Route: 061
  11. ARANESP [Concomitant]
     Indication: ANAEMIA
  12. INSULIN [Concomitant]
     Dosage: 40 UNITS AM; 30 UNITS PM
  13. BENADRYL [Concomitant]
     Dosage: 25 MG, 2 DF AS DIRECTED
     Route: 048
  14. CHLORHEXIDINE GLUCONATE [Concomitant]
     Dosage: 15 ML, SWISH AND SPIT AS DIRECTED
     Route: 048
  15. COZAAR [Concomitant]
     Dosage: 15 MG, BID
     Route: 048
  16. FISH OIL [Concomitant]
     Dosage: 1000 MG, BID (1 AM; 1 PM)
     Route: 050
  17. LISINOPRIL [Concomitant]
     Dosage: 20 MG, QD
     Route: 048
  18. NORCO [Concomitant]
     Indication: PAIN
     Dosage: 1 DF, QID, PRN
     Route: 048
  19. OMEPRAZOLE [Concomitant]
     Dosage: 20 MG, QD
     Route: 048
  20. PRAVASTATIN SODIUM [Concomitant]
     Dosage: 40 MG, QD
     Route: 048
  21. TOPROL XL [Concomitant]
     Dosage: 200 MG, QD
     Route: 048
  22. TRAMADOL [Concomitant]
     Dosage: 50 MG, PRN
  23. VITAMIN D3 [Concomitant]
     Dosage: 1000 IU, QD
     Route: 048
  24. ZOLOFT [Concomitant]
     Dosage: 100 MG IN A.M.; 50 MG IN P.M.
     Route: 048

REACTIONS (24)
  - Pruritus generalised [Not Recovered/Not Resolved]
  - Therapeutic response unexpected [Recovered/Resolved]
  - Rash [Unknown]
  - Pyrexia [Not Recovered/Not Resolved]
  - Hot flush [Not Recovered/Not Resolved]
  - Night sweats [Not Recovered/Not Resolved]
  - Cough [Not Recovered/Not Resolved]
  - Stomatitis [Not Recovered/Not Resolved]
  - Nausea [Not Recovered/Not Resolved]
  - Vomiting [Not Recovered/Not Resolved]
  - Dry skin [Unknown]
  - Constipation [Not Recovered/Not Resolved]
  - Diarrhoea [Not Recovered/Not Resolved]
  - Insomnia [Unknown]
  - Anxiety [Unknown]
  - Hypoaesthesia [Not Recovered/Not Resolved]
  - Paraesthesia [Not Recovered/Not Resolved]
  - Weight increased [Not Recovered/Not Resolved]
  - Anaemia [Not Recovered/Not Resolved]
  - Headache [Not Recovered/Not Resolved]
  - Platelet count decreased [Recovered/Resolved]
  - Contusion [Unknown]
  - Dysphagia [Unknown]
  - Depression [None]
